FAERS Safety Report 20470689 (Version 1)
Quarter: 2022Q1

REPORT INFORMATION
  Report Type: Spontaneous
  Country: US (occurrence: None)
  Receive Date: 20220214
  Receipt Date: 20220214
  Transmission Date: 20220424
  Serious: Yes (Life-Threatening)
  Sender: FDA-Public Use
  Company Number: 2022A068930

PATIENT
  Age: 24101 Day
  Sex: Male
  Weight: 89 kg

DRUGS (5)
  1. EVUSHELD [Suspect]
     Active Substance: CILGAVIMAB\TIXAGEVIMAB
     Indication: COVID-19 prophylaxis
     Dosage: 150/150 MG; GENERIC300.0MG ONCE/SINGLE ADMINISTRATION
     Route: 030
     Dates: start: 20220125, end: 20220125
  2. SOTALOL [Concomitant]
     Active Substance: SOTALOL
  3. REMDISIVIR [Concomitant]
  4. BARICITINIB [Concomitant]
     Active Substance: BARICITINIB
  5. DEXAMETHASONE [Concomitant]
     Active Substance: DEXAMETHASONE

REACTIONS (3)
  - Cardiac arrest [Unknown]
  - COVID-19 [Unknown]
  - Rhinovirus infection [Unknown]

NARRATIVE: CASE EVENT DATE: 20220207
